FAERS Safety Report 14005369 (Version 2)
Quarter: 2017Q4

REPORT INFORMATION
  Report Type: Spontaneous
  Country: JP (occurrence: JP)
  Receive Date: 20170922
  Receipt Date: 20171020
  Transmission Date: 20180321
  Serious: Yes (Hospitalization, Other)
  Sender: FDA-Public Use
  Company Number: JP-PFIZER INC-2017410838

PATIENT
  Age: 65 Year
  Sex: Female
  Weight: 54 kg

DRUGS (6)
  1. SUNVEPRA [Concomitant]
     Active Substance: ASUNAPREVIR
     Indication: HEPATITIS C
     Dosage: 100 MG, 2X/DAY
     Dates: start: 20141204, end: 20150129
  2. MUCOSTA [Concomitant]
     Active Substance: REBAMIPIDE
     Indication: GASTRIC DISORDER
     Dosage: 100 MG, 3X/DAY
     Dates: start: 20150123, end: 20150127
  3. BANAN [Suspect]
     Active Substance: CEFPODOXIME PROXETIL
     Indication: PHARYNGITIS
     Dosage: 100 MG, BID
     Route: 048
     Dates: start: 20150123, end: 20150127
  4. BANAN [Suspect]
     Active Substance: CEFPODOXIME PROXETIL
     Indication: PHARYNGITIS
  5. DAKLINZA [Suspect]
     Active Substance: DACLATASVIR
     Indication: HEPATITIS C
     Dosage: 60 MG, 1X/DAY
     Route: 048
     Dates: start: 20141204, end: 20150129
  6. PA [Concomitant]
     Active Substance: ACETAMINOPHEN\CAFFEINE\PROMETHAZINE\SALICYLAMIDE
     Indication: UPPER RESPIRATORY TRACT INFLAMMATION
     Dosage: 2 DF, 3X/DAY
     Dates: start: 20150123, end: 20150127

REACTIONS (1)
  - Drug-induced liver injury [Recovered/Resolved]

NARRATIVE: CASE EVENT DATE: 20150128
